FAERS Safety Report 24690663 (Version 1)
Quarter: 2024Q4

REPORT INFORMATION
  Report Type: Spontaneous
  Country: US (occurrence: US)
  Receive Date: 20241203
  Receipt Date: 20241203
  Transmission Date: 20250114
  Serious: No
  Sender: PAREXEL
  Company Number: US-NOVEN PHARMACEUTICALS, INC.-2024-NOV-US000538

PATIENT
  Sex: Female

DRUGS (2)
  1. ESTRADIOL [Suspect]
     Active Substance: ESTRADIOL
     Indication: In vitro fertilisation
     Dosage: 0.1 MG, 2 PATCHES EVERY 48 HOURS
     Route: 062
     Dates: start: 20240504
  2. ESTRADIOL [Suspect]
     Active Substance: ESTRADIOL
     Indication: Off label use

REACTIONS (6)
  - Fatigue [Unknown]
  - Headache [Recovered/Resolved]
  - Hormone level abnormal [Recovered/Resolved]
  - Product administration error [Recovered/Resolved]
  - Product quality issue [Recovered/Resolved]
  - Off label use [Not Recovered/Not Resolved]

NARRATIVE: CASE EVENT DATE: 20240101
